FAERS Safety Report 23071219 (Version 1)
Quarter: 2023Q4

REPORT INFORMATION
  Report Type: Spontaneous
  Country: US (occurrence: US)
  Receive Date: 20231016
  Receipt Date: 20231016
  Transmission Date: 20240110
  Serious: No
  Sender: FDA-Public Use
  Company Number: US-BAUSCHBL-2023BNL009846

PATIENT
  Age: 81 Year
  Sex: Male

DRUGS (2)
  1. MIEBO [Suspect]
     Active Substance: PERFLUOROHEXYLOCTANE
     Indication: Postoperative care
     Route: 047
     Dates: start: 20231007
  2. MIEBO [Suspect]
     Active Substance: PERFLUOROHEXYLOCTANE
     Route: 047
     Dates: start: 20231009

REACTIONS (4)
  - Eye irritation [Unknown]
  - Foreign body sensation in eyes [Unknown]
  - Lacrimation increased [Recovering/Resolving]
  - Photophobia [Unknown]

NARRATIVE: CASE EVENT DATE: 20231008
